FAERS Safety Report 15044814 (Version 1)
Quarter: 2018Q2

REPORT INFORMATION
  Report Type: Spontaneous
  Country: FR (occurrence: FR)
  Receive Date: 20180621
  Receipt Date: 20180621
  Transmission Date: 20180711
  Serious: Yes (Hospitalization)
  Sender: FDA-Public Use
  Company Number: FR-TEVA-2018-FR-909886

PATIENT
  Age: 91 Year
  Sex: Female
  Weight: 58 kg

DRUGS (6)
  1. AMOXICILLIN. [Suspect]
     Active Substance: AMOXICILLIN
     Indication: LUNG DISORDER
     Dosage: 3 GRAM DAILY;
     Route: 042
     Dates: start: 20180414, end: 20180414
  2. TARDYFERON [Suspect]
     Active Substance: FERROUS SULFATE
     Dosage: 80 MILLIGRAM DAILY;
     Route: 048
     Dates: start: 201801, end: 20180411
  3. VENTOLINE [Suspect]
     Active Substance: ALBUTEROL
     Indication: LUNG DISORDER
     Route: 055
     Dates: start: 20180411
  4. ACIDE CLAVULANIQUE [Suspect]
     Active Substance: CLAVULANIC ACID
     Indication: LUNG DISORDER
     Dosage: 3 DOSAGE FORMS DAILY;
     Route: 042
     Dates: start: 20180414, end: 20180414
  5. ORAMORPH [Suspect]
     Active Substance: MORPHINE SULFATE
     Indication: GAIT DISTURBANCE
     Route: 048
     Dates: start: 201801
  6. HAVLANE [Suspect]
     Active Substance: LOPRAZOLAM
     Indication: SLEEP DISORDER THERAPY
     Dosage: .5 MILLIGRAM DAILY;
     Route: 048
     Dates: end: 20180411

REACTIONS (2)
  - Liver injury [Recovering/Resolving]
  - Condition aggravated [Recovering/Resolving]

NARRATIVE: CASE EVENT DATE: 201804
